FAERS Safety Report 6554831-2 (Version None)
Quarter: 2010Q1

REPORT INFORMATION
  Report Type: 
  Country: None (occurrence: None)
  Receive Date: 20100127
  Receipt Date: 20100119
  Transmission Date: 20100710
  Serious: Yes (Hospitalization)
  Sender: FDA-Public Use
  Company Number: US-GILEAD-2010-0026557

PATIENT
  Sex: Female

DRUGS (14)
  1. LETAIRIS [Suspect]
     Indication: PULMONARY HYPERTENSION
     Route: 048
     Dates: start: 20081204
  2. REVATIO [Concomitant]
  3. COREG [Concomitant]
  4. PROCRIT [Concomitant]
  5. PLAVIX [Concomitant]
  6. TRICOR [Concomitant]
  7. NEXIUM [Concomitant]
  8. ZETIA [Concomitant]
  9. MEDROL [Concomitant]
  10. FLEXERIL [Concomitant]
  11. POTASSIUM [Concomitant]
  12. OSCAL D [Concomitant]
  13. CENTRUM [Concomitant]
  14. LANTUS [Concomitant]

REACTIONS (1)
  - CLOSTRIDIAL INFECTION [None]
